FAERS Safety Report 23654873 (Version 1)
Quarter: 2024Q1

REPORT INFORMATION
  Report Type: Spontaneous
  Country: CZ (occurrence: CZ)
  Receive Date: 20240320
  Receipt Date: 20240320
  Transmission Date: 20240410
  Serious: Yes (Life-Threatening, Hospitalization, Other)
  Sender: FDA-Public Use
  Company Number: None

PATIENT
  Age: 58 Year
  Sex: Male

DRUGS (34)
  1. AZACITIDINE [Suspect]
     Active Substance: AZACITIDINE
     Indication: Acute myeloid leukaemia
     Dosage: FOURTH CYCLE
  2. AZACITIDINE [Suspect]
     Active Substance: AZACITIDINE
     Dosage: THIRD CYCLE
     Dates: start: 20220902
  3. AZACITIDINE [Suspect]
     Active Substance: AZACITIDINE
     Dosage: FIFTH CYCLE
     Dates: start: 20221116
  4. AZACITIDINE [Suspect]
     Active Substance: AZACITIDINE
     Dosage: SECOND CYCLE
     Dates: start: 20220709
  5. AZACITIDINE [Suspect]
     Active Substance: AZACITIDINE
     Dosage: FIRST CYCLE
     Dates: start: 202206
  6. LINEZOLID [Suspect]
     Active Substance: LINEZOLID
     Indication: Febrile neutropenia
     Dosage: 27-JUL-2022 START DATE OF LINEZOLID
     Route: 065
  7. VENETOCLAX [Suspect]
     Active Substance: VENETOCLAX
     Indication: Acute myeloid leukaemia
     Dosage: THIRD CYCLE?THERAPY START DATE: 02-SEP-2022
  8. VENETOCLAX [Suspect]
     Active Substance: VENETOCLAX
     Indication: Febrile neutropenia
     Dosage: FOURTH CYCLE
  9. VENETOCLAX [Suspect]
     Active Substance: VENETOCLAX
     Dosage: FIFTH CYCLE
     Dates: start: 20221116
  10. VENETOCLAX [Suspect]
     Active Substance: VENETOCLAX
     Dosage: SECOND CYCLE
     Dates: start: 20220709
  11. VENETOCLAX [Suspect]
     Active Substance: VENETOCLAX
     Dosage: FIRST CYCLE
     Dates: start: 202206
  12. VENETOCLAX [Suspect]
     Active Substance: VENETOCLAX
     Dosage: FOURTH CYCLE
  13. FILGRASTIM [Suspect]
     Active Substance: FILGRASTIM
     Indication: Neutropenia
     Dosage: -AUG-2022
     Route: 065
  14. VENETOCLAX [Suspect]
     Active Substance: VENETOCLAX
     Indication: Acute myeloid leukaemia
     Dosage: FIRST CYCLE
     Route: 065
     Dates: start: 202206
  15. VENETOCLAX [Suspect]
     Active Substance: VENETOCLAX
     Indication: Febrile neutropenia
     Dosage: UNK
     Route: 065
     Dates: start: 20220627
  16. POSACONAZOLE [Suspect]
     Active Substance: POSACONAZOLE
     Indication: Bronchopulmonary aspergillosis
     Dosage: THERAPY START DATE: 31-JUL-2022
     Route: 065
  17. AVIBACTAM SODIUM\CEFTAZIDIME [Suspect]
     Active Substance: AVIBACTAM SODIUM\CEFTAZIDIME
     Indication: Febrile neutropenia
     Dosage: UNK?THERAPY START DATE: 09-JUL-2022
     Dates: end: 20220719
  18. AVIBACTAM SODIUM\CEFTAZIDIME [Suspect]
     Active Substance: AVIBACTAM SODIUM\CEFTAZIDIME
     Dosage: UNK
     Dates: start: 20220727
  19. VORICONAZOLE [Suspect]
     Active Substance: VORICONAZOLE
     Indication: Fungal infection
     Route: 065
     Dates: start: 202206, end: 20220731
  20. VORICONAZOLE [Suspect]
     Active Substance: VORICONAZOLE
     Indication: Fungal infection
  21. MEROPENEM [Suspect]
     Active Substance: MEROPENEM
     Indication: Febrile neutropenia
     Dosage: UNK?THERAPY START DATE: 24-JUL-2022
     Route: 065
     Dates: end: 20220727
  22. VANCOMYCIN [Suspect]
     Active Substance: VANCOMYCIN
     Indication: Acute myeloid leukaemia
     Dosage: THERAPY START DATE: 09-JUL-2022
     Route: 065
     Dates: end: 20220719
  23. VANCOMYCIN [Suspect]
     Active Substance: VANCOMYCIN
     Indication: Febrile neutropenia
  24. ISAVUCONAZOLE [Concomitant]
     Active Substance: ISAVUCONAZOLE
     Indication: Bronchopulmonary aspergillosis
     Dosage: UNK
     Dates: start: 20220818
  25. ISAVUCONAZOLE [Concomitant]
     Active Substance: ISAVUCONAZOLE
     Indication: Febrile neutropenia
  26. POTASSIUM [Concomitant]
     Active Substance: POTASSIUM
     Indication: Blood potassium decreased
     Dosage: UNK
     Route: 065
     Dates: start: 202208
  27. AMPHOTERICIN B [Concomitant]
     Active Substance: AMPHOTERICIN B
     Indication: Asthenia
     Dosage: UNK
     Route: 065
     Dates: start: 20220804, end: 20220831
  28. AMPHOTERICIN B [Concomitant]
     Active Substance: AMPHOTERICIN B
     Indication: Decreased appetite
  29. AMPHOTERICIN B [Concomitant]
     Active Substance: AMPHOTERICIN B
     Indication: Weight decreased
  30. AMPHOTERICIN B [Concomitant]
     Active Substance: AMPHOTERICIN B
     Indication: Bronchopulmonary aspergillosis
  31. FOSFOMYCIN [Concomitant]
     Active Substance: FOSFOMYCIN
     Indication: Febrile neutropenia
     Dosage: UNK
     Route: 065
     Dates: start: 2022, end: 20220709
  32. FOSFOMYCIN [Concomitant]
     Active Substance: FOSFOMYCIN
     Indication: Bronchopulmonary aspergillosis
  33. AMIKACIN [Concomitant]
     Active Substance: AMIKACIN
     Indication: Febrile neutropenia
     Dosage: UNK
     Route: 065
     Dates: start: 2022, end: 20220709
  34. NYSTATIN [Concomitant]
     Active Substance: NYSTATIN
     Indication: Febrile neutropenia
     Dosage: UNK
     Route: 065
     Dates: start: 20220724, end: 2022

REACTIONS (10)
  - Febrile neutropenia [Recovered/Resolved]
  - Pancytopenia [Recovered/Resolved]
  - Pneumonia fungal [Recovered/Resolved]
  - Thrombocytopenia [Recovered/Resolved]
  - Fungal infection [Unknown]
  - Mucosal disorder [Unknown]
  - C-reactive protein increased [Unknown]
  - Rash [Unknown]
  - Peripheral swelling [Unknown]
  - Pulmonary resection [Unknown]

NARRATIVE: CASE EVENT DATE: 20220601
